FAERS Safety Report 7491222-4 (Version None)
Quarter: 2011Q2

REPORT INFORMATION
  Report Type: 
  Country: None (occurrence: None)
  Receive Date: 20110519
  Receipt Date: 20110513
  Transmission Date: 20111010
  Serious: Yes (Other)
  Sender: FDA-Public Use
  Company Number: GB-PFIZER INC-2011104122

PATIENT
  Age: 81 Year
  Sex: Female

DRUGS (1)
  1. DOXYCYCLINE HYCLATE [Suspect]
     Indication: CELLULITIS
     Dosage: 100 MG, UNK
     Route: 048
     Dates: start: 20110502, end: 20110502

REACTIONS (2)
  - RESPIRATORY DISTRESS [None]
  - WHEEZING [None]
